FAERS Safety Report 4829320-3 (Version None)
Quarter: 2005Q4

REPORT INFORMATION
  Report Type: 
  Country: None (occurrence: None)
  Receive Date: 20051115
  Receipt Date: 20051115
  Transmission Date: 20060501
  Serious: No
  Sender: FDA-Public Use
  Company Number: None

PATIENT
  Sex: Male
  Weight: 119.296 kg

DRUGS (8)
  1. LOSARTAN POTASSIUM [Suspect]
     Indication: HYPERTENSION
     Dosage: 50MG   ONCE DAILY   PO
     Route: 048
     Dates: start: 20050620, end: 20050811
  2. ALPRAZOLAM [Concomitant]
  3. CIMETIDINE [Concomitant]
  4. CYCLOBENZAPRINE HCL [Concomitant]
  5. HYDROCHLOROTHIAZIDE [Concomitant]
  6. IBUPROFEN [Concomitant]
  7. SIMVASTATIN [Concomitant]
  8. VERAPAMIL HCL [Concomitant]

REACTIONS (2)
  - PHOTOPHOBIA [None]
  - VISION BLURRED [None]
